FAERS Safety Report 15740162 (Version 1)
Quarter: 2018Q4

REPORT INFORMATION
  Report Type: Spontaneous
  Country: US (occurrence: US)
  Receive Date: 20181219
  Receipt Date: 20181219
  Transmission Date: 20190205
  Serious: No
  Sender: FDA-Public Use
  Company Number: US-B.I. PHARMACEUTICALS,INC./RIDGEFIELD-2018-BI-059605

PATIENT
  Age: 66 Year
  Sex: Male

DRUGS (2)
  1. METFORMIN [Concomitant]
     Active Substance: METFORMIN HYDROCHLORIDE
     Indication: PRODUCT USED FOR UNKNOWN INDICATION
     Route: 065
  2. GLYXAMBI [Suspect]
     Active Substance: EMPAGLIFLOZIN\LINAGLIPTIN
     Indication: TYPE 2 DIABETES MELLITUS
     Dosage: ONCE A DAY;  FORM STRENGTH: 10 MG/ 5 MG; FORMULATION: TABLET
     Route: 048
     Dates: start: 2015

REACTIONS (4)
  - Pelvic pain [Not Recovered/Not Resolved]
  - Asthenia [Unknown]
  - Hernia pain [Not Recovered/Not Resolved]
  - Arthralgia [Not Recovered/Not Resolved]

NARRATIVE: CASE EVENT DATE: 201811
